FAERS Safety Report 7747628-9 (Version None)
Quarter: 2011Q3

REPORT INFORMATION
  Report Type: 
  Country: None (occurrence: None)
  Receive Date: 20110913
  Receipt Date: 20110908
  Transmission Date: 20111222
  Serious: Yes (Life-Threatening, Hospitalization, Other)
  Sender: FDA-Public Use
  Company Number: VE-ABBOTT-11P-178-0835342-00

PATIENT
  Age: 21 Year
  Sex: Female

DRUGS (2)
  1. HUMIRA [Suspect]
     Indication: PSORIASIS
     Route: 058
     Dates: start: 20101201, end: 20110615
  2. ISONIACIDA [Concomitant]
     Indication: TUBERCULOSIS
     Dates: start: 20101101, end: 20110728

REACTIONS (3)
  - TUBERCULOSIS [None]
  - BRAIN OEDEMA [None]
  - CONVULSION [None]
